FAERS Safety Report 21076217 (Version 1)
Quarter: 2022Q3

REPORT INFORMATION
  Report Type: Spontaneous
  Country: US (occurrence: None)
  Receive Date: 20220713
  Receipt Date: 20220713
  Transmission Date: 20221026
  Serious: Yes (Hospitalization)
  Sender: FDA-Public Use
  Company Number: None

PATIENT
  Age: 63 Year
  Sex: Female
  Weight: 55.35 kg

DRUGS (2)
  1. PAXLOVID [Suspect]
     Active Substance: NIRMATRELVIR\RITONAVIR
     Indication: COVID-19
     Dosage: FREQUENCY : TWICE A DAY;?
     Route: 048
     Dates: start: 20220709, end: 20220710
  2. Gummmy multi vitamin [Concomitant]

REACTIONS (6)
  - Dysphonia [None]
  - Taste disorder [None]
  - Abdominal pain [None]
  - Diarrhoea haemorrhagic [None]
  - Gastrointestinal mucosal exfoliation [None]
  - Rectal discharge [None]

NARRATIVE: CASE EVENT DATE: 20220711
